FAERS Safety Report 17351137 (Version 1)
Quarter: 2020Q1

REPORT INFORMATION
  Report Type: Spontaneous
  Country: ES (occurrence: ES)
  Receive Date: 20200130
  Receipt Date: 20200130
  Transmission Date: 20200409
  Serious: Yes (Life-Threatening, Hospitalization, Other)
  Sender: FDA-Public Use
  Company Number: ES-AUROBINDO-AUR-APL-2020-005447

PATIENT
  Age: 68 Year
  Sex: Female

DRUGS (6)
  1. OLANZAPINE. [Suspect]
     Active Substance: OLANZAPINE
     Indication: ANXIETY DISORDER
     Dosage: 10 MILLIGRAM, ONCE A DAY
     Route: 065
     Dates: start: 20200117, end: 20200119
  2. PLENUR [LITHIUM CARBONATE] [Suspect]
     Active Substance: LITHIUM CARBONATE
     Dosage: 200 MILLIGRAM, ONCE A DAY
     Route: 048
     Dates: start: 20200113, end: 20200116
  3. QUETIAPINE. [Suspect]
     Active Substance: QUETIAPINE
     Indication: BIPOLAR DISORDER
     Dosage: 600 MILLIGRAM, ONCE A DAY, (100-100-400)
     Route: 065
     Dates: start: 20200116, end: 20200119
  4. VENLAFAXINE [Suspect]
     Active Substance: VENLAFAXINE HYDROCHLORIDE
     Indication: BIPOLAR DISORDER
     Dosage: 75 MILLIGRAM, ONCE A DAY
     Route: 065
     Dates: start: 20200116
  5. PLENUR [LITHIUM CARBONATE] [Suspect]
     Active Substance: LITHIUM CARBONATE
     Indication: BIPOLAR DISORDER
     Dosage: 400 MILLIGRAM, ONCE A DAY
     Route: 048
     Dates: start: 20200116, end: 20200119
  6. HALOPERIDOL. [Suspect]
     Active Substance: HALOPERIDOL
     Indication: INSOMNIA
     Dosage: 1 DOSAGE FORM, ONCE A DAY
     Route: 065
     Dates: start: 20200118, end: 20200119

REACTIONS (1)
  - Hyperthermia malignant [Recovering/Resolving]

NARRATIVE: CASE EVENT DATE: 20200119
